FAERS Safety Report 7631002-X (Version None)
Quarter: 2011Q3

REPORT INFORMATION
  Report Type: 
  Country: None (occurrence: None)
  Receive Date: 20110725
  Receipt Date: 20110714
  Transmission Date: 20111222
  Serious: Yes (Hospitalization)
  Sender: FDA-Public Use
  Company Number: 2010BI004882

PATIENT
  Age: 53 Year
  Sex: Female
  Weight: 108 kg

DRUGS (4)
  1. NEURONTIN [Concomitant]
     Indication: MUSCLE SPASMS
  2. OXYCODONE HCL [Concomitant]
     Indication: PAIN
  3. TYSABRI [Suspect]
     Indication: MULTIPLE SCLEROSIS
     Route: 042
     Dates: start: 20071001
  4. BACLOFEN [Concomitant]
     Indication: PAIN IN EXTREMITY

REACTIONS (10)
  - FAECAL INCONTINENCE [None]
  - BILIARY CIRRHOSIS PRIMARY [None]
  - DIARRHOEA [None]
  - FATIGUE [None]
  - STOMATITIS [None]
  - COLITIS ULCERATIVE [None]
  - DYSPHONIA [None]
  - ANAL SPHINCTER ATONY [None]
  - MEMORY IMPAIRMENT [None]
  - GASTROOESOPHAGEAL REFLUX DISEASE [None]
